FAERS Safety Report 10915016 (Version 1)
Quarter: 2015Q1

REPORT INFORMATION
  Report Type: Spontaneous
  Country: US (occurrence: US)
  Receive Date: 20150315
  Receipt Date: 20150315
  Transmission Date: 20150721
  Serious: No
  Sender: FDA-Public Use
  Company Number: US-ASTRAZENECA-2015SE20753

PATIENT
  Age: 55 Year
  Sex: Female
  Weight: 67.6 kg

DRUGS (3)
  1. HUMALOG INSULIN PUMP [Concomitant]
  2. FARXIGA [Suspect]
     Active Substance: DAPAGLIFLOZIN PROPANEDIOL
     Indication: TYPE 1 DIABETES MELLITUS
     Route: 048
     Dates: start: 20150226
  3. FARXIGA [Suspect]
     Active Substance: DAPAGLIFLOZIN PROPANEDIOL
     Indication: RENAL FAILURE
     Route: 048
     Dates: start: 20150226

REACTIONS (5)
  - Hypoglycaemia [Unknown]
  - Hyperhidrosis [Unknown]
  - Feeling hot [Unknown]
  - Heart rate increased [Unknown]
  - Intentional product misuse [Unknown]

NARRATIVE: CASE EVENT DATE: 20150228
